FAERS Safety Report 24421998 (Version 2)
Quarter: 2024Q4

REPORT INFORMATION
  Report Type: Spontaneous
  Country: US (occurrence: US)
  Receive Date: 20241010
  Receipt Date: 20241025
  Transmission Date: 20250114
  Serious: Yes (Hospitalization)
  Sender: TEVA
  Company Number: US-TEVA-VS-3251468

PATIENT
  Age: 54 Year
  Sex: Female

DRUGS (14)
  1. DEXAMETHASONE [Suspect]
     Active Substance: DEXAMETHASONE
     Indication: Anaphylactic reaction
     Route: 065
  2. ASPIRIN [Concomitant]
     Active Substance: ASPIRIN
     Indication: Premedication
     Dosage: 1 HOUR BEFORE THE PROCEDURE
     Route: 048
  3. ACETAMINOPHEN [Concomitant]
     Active Substance: ACETAMINOPHEN
     Indication: Premedication
     Route: 065
  4. METHOCARBAMOL [Concomitant]
     Active Substance: METHOCARBAMOL
     Indication: Arthralgia
     Route: 065
  5. RITUXIMAB [Suspect]
     Active Substance: RITUXIMAB
     Indication: B-cell lymphoma
     Route: 065
  6. EPINEPHRINE [Suspect]
     Active Substance: EPINEPHRINE
     Indication: Anaphylactic reaction
     Route: 065
  7. ONDANSETRON [Concomitant]
     Active Substance: ONDANSETRON
     Indication: Premedication
     Route: 042
  8. PREDNISONE [Concomitant]
     Active Substance: PREDNISONE
     Indication: Premedication
     Dosage: 13 HOURS, 7 HOURS, AND 1 HOUR BEFORE THE PROCEDURE
     Route: 048
  9. DIPHENHYDRAMINE HYDROCHLORIDE [Concomitant]
     Active Substance: DIPHENHYDRAMINE HYDROCHLORIDE
     Indication: Premedication
     Dosage: 20 MINUTES BEFORE THE PROCEDURE
     Route: 042
  10. FAMOTIDINE [Suspect]
     Active Substance: FAMOTIDINE
     Indication: Anaphylactic reaction
     Route: 065
  11. FAMOTIDINE [Suspect]
     Active Substance: FAMOTIDINE
     Indication: Anaphylactic reaction
     Dosage: 20 MINUTES BEFORE THE PROCEDURE
     Route: 042
  12. OMALIZUMAB [Concomitant]
     Active Substance: OMALIZUMAB
     Indication: Chronic spontaneous urticaria
     Route: 065
  13. LORATADINE [Suspect]
     Active Substance: LORATADINE
     Indication: Anaphylactic reaction
     Route: 065
  14. MONTELUKAST [Suspect]
     Active Substance: MONTELUKAST
     Indication: Anaphylactic reaction
     Dosage: 13 HOURS BEFORE THE PROCEDURE
     Route: 048

REACTIONS (3)
  - Anaphylactic reaction [Recovering/Resolving]
  - Drug ineffective [Unknown]
  - Cytokine release syndrome [Recovering/Resolving]
